FAERS Safety Report 22619275 (Version 1)
Quarter: 2023Q2

REPORT INFORMATION
  Report Type: Spontaneous
  Country: US (occurrence: US)
  Receive Date: 20230620
  Receipt Date: 20230620
  Transmission Date: 20230721
  Serious: No
  Sender: FDA-Public Use
  Company Number: US-drreddys-SPO/USA/23/0166477

PATIENT
  Age: 28 Year

DRUGS (1)
  1. ZENATANE [Suspect]
     Active Substance: ISOTRETINOIN
     Indication: Product used for unknown indication
     Dosage: RMA ISSUE DATE- 16-MARCH-2023 01:36:28 PM, 01-MAY-2023 09:24:34 AM

REACTIONS (1)
  - Treatment noncompliance [Unknown]
